FAERS Safety Report 18512796 (Version 1)
Quarter: 2020Q4

REPORT INFORMATION
  Report Type: Spontaneous
  Country: FR (occurrence: FR)
  Receive Date: 20201117
  Receipt Date: 20201117
  Transmission Date: 20210114
  Serious: Yes (Hospitalization)
  Sender: FDA-Public Use
  Company Number: FR-MYLANLABS-2020M1094465

PATIENT
  Age: 71 Year
  Sex: Male

DRUGS (3)
  1. CLOXACILLINE                       /00012001/ [Suspect]
     Active Substance: CLOXACILLIN
     Indication: ENDOCARDITIS
     Dosage: IN 3 INJECTIONS
     Route: 042
     Dates: start: 20180202
  2. GENTAMICINE                        /00047101/ [Suspect]
     Active Substance: GENTAMICIN
     Indication: ENDOCARDITIS
     Dosage: 240 MG ON 02/02 THEN 270 MG ON 04/02
     Route: 042
     Dates: start: 20180202, end: 20180204
  3. FUROSEMIDE. [Suspect]
     Active Substance: FUROSEMIDE
     Indication: CARDIAC FAILURE ACUTE
     Dosage: 40 MILLIGRAM, QD
     Dates: start: 20180203, end: 20180220

REACTIONS (1)
  - Acute kidney injury [Recovered/Resolved]

NARRATIVE: CASE EVENT DATE: 20180204
